FAERS Safety Report 10211218 (Version 1)
Quarter: 2014Q2

REPORT INFORMATION
  Report Type: Spontaneous
  Country: US (occurrence: None)
  Receive Date: 20140530
  Receipt Date: 20140530
  Transmission Date: 20141212
  Serious: Yes (Other)
  Sender: FDA-Public Use
  Company Number: None

PATIENT
  Age: 55 Day
  Sex: Male
  Weight: 127.01 kg

DRUGS (1)
  1. PROCRIT [Suspect]
     Indication: PRODUCT USED FOR UNKNOWN INDICATION
     Dosage: INJECTION ONCE DAILY INTO THE MUSCLE
     Route: 030
     Dates: start: 20140505, end: 20140528

REACTIONS (4)
  - Cerebrovascular accident [None]
  - Blood glucose increased [None]
  - Hallucination [None]
  - Abnormal behaviour [None]
